FAERS Safety Report 10551791 (Version 1)
Quarter: 2014Q4

REPORT INFORMATION
  Report Type: Spontaneous
  Country: US (occurrence: None)
  Receive Date: 20141023
  Receipt Date: 20141023
  Transmission Date: 20150529
  Serious: No
  Sender: FDA-Public Use
  Company Number: AP356-01011-SPO-US

PATIENT
  Age: 60 Year
  Sex: Female

DRUGS (1)
  1. BELVIQ [Suspect]
     Active Substance: LORCASERIN HYDROCHLORIDE
     Dosage: 20 MG, 2 IN 1 D, ORAL
     Route: 048
     Dates: start: 20140703, end: 20140704

REACTIONS (9)
  - Nausea [None]
  - Balance disorder [None]
  - Aphasia [None]
  - Constipation [None]
  - Lethargy [None]
  - Insomnia [None]
  - Feeling abnormal [None]
  - Abdominal discomfort [None]
  - Intentional underdose [None]

NARRATIVE: CASE EVENT DATE: 201407
